FAERS Safety Report 9083126 (Version 1)
Quarter: 2013Q1

REPORT INFORMATION
  Report Type: Report from Study
  Country: US (occurrence: US)
  Receive Date: 20130129
  Receipt Date: 20130129
  Transmission Date: 20140127
  Serious: No
  Sender: FDA-Public Use
  Company Number: US-ABBOTT-12P-163-0945406-00

PATIENT
  Age: 14 Year
  Sex: Male

DRUGS (8)
  1. HUMIRA 40 MG/0.8 ML PEN [Suspect]
     Indication: CROHN^S DISEASE
     Route: 058
     Dates: start: 201106
  2. HUMIRA 40 MG/0.8 ML PEN [Suspect]
     Route: 058
  3. HUMIRA 40 MG/0.8 ML PEN [Suspect]
     Route: 058
  4. PREDNISONE [Suspect]
     Indication: PRODUCT USED FOR UNKNOWN INDICATION
  5. PREDNISONE [Suspect]
  6. PROVENTIL [Concomitant]
     Indication: ASTHMA
  7. 6-MP [Concomitant]
     Indication: PRODUCT USED FOR UNKNOWN INDICATION
  8. IRON SUPPLEMENTS [Concomitant]
     Indication: PRODUCT USED FOR UNKNOWN INDICATION

REACTIONS (1)
  - Drug ineffective [Not Recovered/Not Resolved]
